FAERS Safety Report 6984296 (Version 3)
Quarter: 2014Q2

REPORT INFORMATION
  Report Type: Spontaneous
  Country: US (occurrence: US)
  Receive Date: 20090501
  Receipt Date: 20140415
  Transmission Date: 20141212
  Serious: Yes (Hospitalization, Other)
  Sender: FDA-Public Use
  Company Number: US-ALEXION-A200800065

PATIENT
  Age: 62 Year
  Sex: Male

DRUGS (26)
  1. SOLIRIS [Suspect]
     Indication: PAROXYSMAL NOCTURNAL HAEMOGLOBINURIA
     Dosage: 600 MG, SINGLE
     Route: 042
     Dates: start: 20080319, end: 20080319
  2. SOLIRIS [Suspect]
     Dosage: 600 MG, SINGLE
     Route: 042
     Dates: start: 20080326, end: 20080326
  3. SOLIRIS [Suspect]
     Dosage: 600 MG, SINGLE
     Route: 042
     Dates: start: 20080402, end: 20080402
  4. SOLIRIS [Suspect]
     Dosage: 600 MG, SINGLE
     Route: 042
     Dates: start: 20080409, end: 20080409
  5. SOLIRIS [Suspect]
     Dosage: 900 MG, SINGLE
     Route: 042
     Dates: start: 20080416, end: 20080416
  6. SOLIRIS [Suspect]
     Dosage: 900 MG, SINGLE
     Route: 042
     Dates: start: 20080430, end: 20080430
  7. SOLIRIS [Suspect]
     Dosage: 900 MG, SINGLE
     Route: 042
     Dates: start: 20080514, end: 20080514
  8. SOLIRIS [Suspect]
     Dosage: 900 MG, SINGLE
     Route: 042
     Dates: start: 20080528, end: 20080528
  9. SOLIRIS [Suspect]
     Dosage: 900 MG, SINGLE
     Route: 042
     Dates: start: 20080611, end: 20080611
  10. SOLIRIS [Suspect]
     Dosage: 900 MG, SINGLE
     Route: 042
     Dates: start: 20080623, end: 20080623
  11. SOLIRIS [Suspect]
     Dosage: 900 MG, SINGLE
     Route: 042
     Dates: start: 20080703, end: 20080703
  12. TYLENOL /00020001/ [Concomitant]
     Indication: PREMEDICATION
     Dosage: UNK, SINGLE
     Dates: start: 20080319, end: 20080319
  13. TYLENOL /00020001/ [Concomitant]
     Dosage: UNK, SINGLE
     Dates: start: 20080402, end: 20080402
  14. TYLENOL /00020001/ [Concomitant]
     Dosage: UNK, SINGLE
     Dates: start: 20080409, end: 20080409
  15. TYLENOL /00020001/ [Concomitant]
     Dosage: UNK, SINGLE
     Dates: start: 20080416, end: 20080416
  16. BACTRIM /00086101/ [Concomitant]
  17. LOVENOX /01708202/ [Concomitant]
  18. KEPPRA [Concomitant]
     Dosage: UNK, UNK
  19. BENADRYL /00000402/ [Concomitant]
     Indication: PREMEDICATION
     Dosage: UNK, SINGLE
     Dates: start: 20080319, end: 20080319
  20. BENADRYL /00000402/ [Concomitant]
     Dosage: UNK, SINGLE
     Dates: start: 20080402, end: 20080402
  21. BENADRYL /00000402/ [Concomitant]
     Dosage: UNK, SINGLE
     Dates: start: 20080409, end: 20080409
  22. BENADRYL /00000402/ [Concomitant]
     Dosage: UNK, SINGLE
     Dates: start: 20080416, end: 20080416
  23. DECADRON /00016001/ [Concomitant]
     Indication: PREMEDICATION
     Dosage: UNK, SINGLE
     Dates: start: 20080319, end: 20080319
  24. DECADRON /00016001/ [Concomitant]
     Dosage: UNK, SINGLE
     Dates: start: 20080402, end: 20080402
  25. DECADRON /00016001/ [Concomitant]
     Dosage: UNK, SINGLE
     Dates: start: 20080409, end: 20080409
  26. DECADRON /00016001/ [Concomitant]
     Dosage: UNK, SINGLE
     Dates: start: 20080416, end: 20080416

REACTIONS (11)
  - Staphylococcal infection [Recovered/Resolved]
  - Osteomyelitis [Recovered/Resolved]
  - Medical device change [Recovered/Resolved]
  - Transfusion [Unknown]
  - Insomnia [Recovered/Resolved]
  - Haemoglobinuria [Recovered/Resolved]
  - Blood lactate dehydrogenase increased [Unknown]
  - Toothache [Not Recovered/Not Resolved]
  - Oral herpes [Not Recovered/Not Resolved]
  - Pyrexia [Recovered/Resolved]
  - Fatigue [Unknown]
